FAERS Safety Report 8492616-0 (Version None)
Quarter: 2012Q3

REPORT INFORMATION
  Report Type: 
  Country: None (occurrence: None)
  Receive Date: 20120706
  Receipt Date: 20120702
  Transmission Date: 20120928
  Serious: Yes (Death)
  Sender: FDA-Public Use
  Company Number: CN-PFIZER INC-2012119450

PATIENT
  Age: 40 Year
  Sex: Female
  Weight: 51.5 kg

DRUGS (3)
  1. DALTEPARIN SODIUM [Concomitant]
     Indication: THROMBOLYSIS
     Dosage: 5000 IU, Q12H
     Route: 058
     Dates: start: 20120329, end: 20120504
  2. WARFARIN SODIUM [Concomitant]
     Indication: THROMBOLYSIS
     Dosage: 3 MG, 1X/DAY
     Route: 048
     Dates: start: 20120329, end: 20120504
  3. CRIZOTINIB [Suspect]
     Indication: NON-SMALL CELL LUNG CANCER
     Dosage: 250 MG, 2X/DAY
     Route: 048
     Dates: start: 20111123, end: 20120502

REACTIONS (1)
  - PULMONARY EMBOLISM [None]
